FAERS Safety Report 7954268-5 (Version None)
Quarter: 2011Q4

REPORT INFORMATION
  Report Type: 
  Country: None (occurrence: None)
  Receive Date: 20111202
  Receipt Date: 20111121
  Transmission Date: 20120403
  Serious: Yes (Hospitalization)
  Sender: FDA-Public Use
  Company Number: JP-EISAI INC-E7389-01759-SPO-JP

PATIENT
  Age: 52 Year
  Sex: Female
  Weight: 52 kg

DRUGS (2)
  1. HALAVEN [Suspect]
     Route: 041
     Dates: start: 20110913, end: 20110920
  2. HALAVEN [Suspect]
     Route: 041
     Dates: start: 20111018

REACTIONS (7)
  - MALAISE [None]
  - NEUTROPENIA [None]
  - ANAEMIA [None]
  - LYMPHOPENIA [None]
  - FEBRILE NEUTROPENIA [None]
  - LEUKOPENIA [None]
  - PNEUMONIA [None]
